FAERS Safety Report 4716274-3 (Version None)
Quarter: 2005Q2

REPORT INFORMATION
  Report Type: 
  Country: None (occurrence: None)
  Receive Date: 20050630
  Receipt Date: 20050302
  Transmission Date: 20051028
  Serious: Yes (Hospitalization)
  Sender: FDA-Public Use
  Company Number: US_990421369

PATIENT
  Age: 60 Year
  Sex: Female
  Weight: 87 kg

DRUGS (15)
  1. REGULAR INSULIN [Suspect]
     Indication: DIABETES MELLITUS
  2. ILETIN [Suspect]
     Indication: DIABETES MELLITUS
     Dosage: 20 U DAY
  3. LENTE ILETIN II (PORK) [Suspect]
     Indication: DIABETES MELLITUS
  4. HUMULIN R [Suspect]
     Indication: DIABETES MELLITUS
     Dates: end: 19980101
  5. HUMALOG MIX 75/25 [Suspect]
     Indication: DIABETES MELLITUS
  6. NOVOLIN NPH (INSULIN HUMAN INJECTION, ISOPHANE) [Concomitant]
  7. NOVOLIN R [Concomitant]
  8. RELAFEN [Concomitant]
  9. NEURONTIN [Concomitant]
  10. WELLBUTRIN [Concomitant]
  11. TRENTAL [Concomitant]
  12. DEXADEM [Concomitant]
  13. XANAX (ALPRAZOLAM DUM) [Concomitant]
  14. TRAZADONE (TRAZODONE) [Concomitant]
  15. ULTRAM [Concomitant]

REACTIONS (9)
  - BLOOD GLUCOSE DECREASED [None]
  - BLOOD GLUCOSE INCREASED [None]
  - CARDIAC FAILURE CONGESTIVE [None]
  - CONNECTIVE TISSUE DISORDER [None]
  - ERYTHEMA [None]
  - INTERVERTEBRAL DISC DEGENERATION [None]
  - MEMORY IMPAIRMENT [None]
  - MYOCARDIAL INFARCTION [None]
  - NEUROPATHY [None]
